FAERS Safety Report 5198136-3 (Version None)
Quarter: 2006Q4

REPORT INFORMATION
  Report Type: 
  Country: None (occurrence: None)
  Receive Date: 20061228
  Receipt Date: 20061228
  Transmission Date: 20070319
  Serious: Yes (Other)
  Sender: FDA-Public Use
  Company Number: None

PATIENT
  Age: 81 Year
  Sex: Male
  Weight: 70.0354 kg

DRUGS (1)
  1. BETAMETHASONE SODIUM PHOSPHATE AND BETAMETHASONE ACETATE [Suspect]
     Indication: UPPER RESPIRATORY TRACT INFECTION
     Dosage: 1CC  1 DOSE  L GLUT
     Dates: start: 20061204

REACTIONS (3)
  - INJECTION SITE ERYTHEMA [None]
  - INJECTION SITE PAIN [None]
  - INJECTION SITE SWELLING [None]
